FAERS Safety Report 25348675 (Version 1)
Quarter: 2025Q2

REPORT INFORMATION
  Report Type: Spontaneous
  Country: CN (occurrence: CN)
  Receive Date: 20250522
  Receipt Date: 20250522
  Transmission Date: 20250716
  Serious: Yes (Hospitalization)
  Sender: PFIZER
  Company Number: CN-PFIZER INC-PV202500060644

PATIENT
  Age: 56 Year
  Sex: Female
  Weight: 65 kg

DRUGS (1)
  1. LORLATINIB [Suspect]
     Active Substance: LORLATINIB
     Indication: Lung adenocarcinoma stage IV
     Dosage: 100 MG, 1X/DAY
     Route: 048
     Dates: start: 20241025, end: 20250513

REACTIONS (1)
  - Lipids increased [Not Recovered/Not Resolved]

NARRATIVE: CASE EVENT DATE: 20250513
